FAERS Safety Report 4301490-5 (Version None)
Quarter: 2004Q1

REPORT INFORMATION
  Report Type: 
  Country: None (occurrence: None)
  Receive Date: 20040218
  Receipt Date: 20040211
  Transmission Date: 20041129
  Serious: Yes (Death)
  Sender: FDA-Public Use
  Company Number: US-JNJFOC-20040202607

PATIENT
  Sex: Male

DRUGS (1)
  1. NIZORAL [Suspect]
     Indication: PROSTATE CANCER
     Dosage: ORAL
     Route: 048
     Dates: start: 19970101, end: 20040127

REACTIONS (1)
  - MYOCARDIAL INFARCTION [None]
